FAERS Safety Report 11264470 (Version 1)
Quarter: 2015Q3

REPORT INFORMATION
  Report Type: Spontaneous
  Country: US (occurrence: US)
  Receive Date: 20150713
  Receipt Date: 20150713
  Transmission Date: 20151125
  Serious: No
  Sender: FDA-Public Use
  Company Number: US-JNJFOC-20150619110

PATIENT
  Age: 82 Year
  Sex: Female
  Weight: 77.11 kg

DRUGS (4)
  1. LEVAQUIN [Suspect]
     Active Substance: LEVOFLOXACIN
     Indication: SINUSITIS
     Dosage: FOR 5 DAYS
     Route: 048
     Dates: start: 201503, end: 201503
  2. ZOLOFT [Concomitant]
     Active Substance: SERTRALINE HYDROCHLORIDE
     Route: 048
  3. METFORMIN [Concomitant]
     Active Substance: METFORMIN HYDROCHLORIDE
     Indication: DIABETES MELLITUS
     Route: 048
  4. BABY ASPIRIN [Concomitant]
     Active Substance: ASPIRIN
     Route: 048

REACTIONS (4)
  - Pain [Not Recovered/Not Resolved]
  - Muscular weakness [Recovered/Resolved]
  - Malaise [Not Recovered/Not Resolved]
  - Gait disturbance [Not Recovered/Not Resolved]

NARRATIVE: CASE EVENT DATE: 201503
